FAERS Safety Report 10193703 (Version 2)
Quarter: 2015Q2

REPORT INFORMATION
  Report Type: Spontaneous
  Country: US (occurrence: US)
  Receive Date: 20140524
  Receipt Date: 20150604
  Transmission Date: 20150821
  Serious: No
  Sender: FDA-Public Use
  Company Number: US-SA-2014SA000437

PATIENT
  Age: 51 Year
  Sex: Female

DRUGS (4)
  1. LANTUS SOLOSTAR [Suspect]
     Active Substance: INSULIN GLARGINE
     Indication: TYPE 1 DIABETES MELLITUS
     Dosage: TAKEN FROM-ABOUT 3-4 YEARS AGO, DOSE- SLIDING SCALE
     Route: 058
  2. SOLOSTAR [Concomitant]
     Active Substance: DEVICE
     Indication: TYPE 1 DIABETES MELLITUS
     Dosage: TAKEN FROM-ABOUT 3-4 YEARS AGO
  3. NOVOLOG [Concomitant]
     Active Substance: INSULIN ASPART
  4. LANTUS SOLOSTAR [Suspect]
     Active Substance: INSULIN GLARGINE
     Indication: TYPE 1 DIABETES MELLITUS
     Dosage: TAKEN FROM-ABOUT 3-4 YEARS AGO, DOSE- SLIDING SCALE DOSE:32 UNIT(S)
     Route: 065

REACTIONS (5)
  - Malaise [Unknown]
  - Stress [Unknown]
  - Blood glucose increased [Unknown]
  - Therapeutic response decreased [Unknown]
  - Blood glucose decreased [Unknown]
